FAERS Safety Report 5171312-1 (Version None)
Quarter: 2006Q4

REPORT INFORMATION
  Report Type: 
  Country: None (occurrence: None)
  Receive Date: 20061208
  Receipt Date: 20061208
  Transmission Date: 20070319
  Serious: Yes (Other)
  Sender: FDA-Public Use
  Company Number: None

PATIENT
  Sex: Male

DRUGS (2)
  1. ORACEA [Suspect]
     Indication: ROSACEA
     Dosage: 40MG -  1 TABLET  QD  PO
     Route: 048
     Dates: start: 20060822, end: 20060830
  2. ORACEA [Suspect]
     Dosage: 40MG  -  1 TABLET  QOD   PO
     Route: 048
     Dates: start: 20060906, end: 20060910

REACTIONS (1)
  - MUSCULAR WEAKNESS [None]
